FAERS Safety Report 8055644-5 (Version None)
Quarter: 2012Q1

REPORT INFORMATION
  Report Type: 
  Country: None (occurrence: None)
  Receive Date: 20120119
  Receipt Date: 20111004
  Transmission Date: 20120608
  Serious: Yes (Other)
  Sender: FDA-Public Use
  Company Number: CA-JNJFOC-20110604240

PATIENT
  Sex: Female
  Weight: 78 kg

DRUGS (1)
  1. REMICADE [Suspect]
     Indication: COLITIS ULCERATIVE
     Dosage: 100MG/VIAL
     Route: 042
     Dates: start: 20071101

REACTIONS (3)
  - HYPERSENSITIVITY [None]
  - PARAESTHESIA [None]
  - BURNING SENSATION [None]
